FAERS Safety Report 7834622-2 (Version None)
Quarter: 2011Q4

REPORT INFORMATION
  Report Type: 
  Country: None (occurrence: None)
  Receive Date: 20111024
  Receipt Date: 20111014
  Transmission Date: 20120403
  Serious: Yes (Hospitalization)
  Sender: FDA-Public Use
  Company Number: US-ASTRAZENECA-2010SE47884

PATIENT
  Age: 60 Year
  Sex: Female
  Weight: 46.3 kg

DRUGS (12)
  1. SEROQUEL [Suspect]
     Route: 048
     Dates: start: 20080101
  2. SEROQUEL [Suspect]
     Route: 048
  3. KLONOPIN [Concomitant]
  4. LORCET-HD [Concomitant]
  5. NEXIUM [Suspect]
     Route: 048
  6. CLONIDINE [Concomitant]
  7. SEROQUEL [Suspect]
     Route: 048
     Dates: start: 19970101
  8. ATENOLOL [Concomitant]
  9. PROTONIX [Concomitant]
  10. SEROQUEL [Suspect]
     Indication: BIPOLAR DISORDER
     Route: 048
     Dates: start: 19970101
  11. VISTARIL [Concomitant]
  12. SEROQUEL [Suspect]
     Route: 048

REACTIONS (13)
  - DEHYDRATION [None]
  - ALTERED STATE OF CONSCIOUSNESS [None]
  - BENIGN RENAL NEOPLASM [None]
  - RESTLESS LEGS SYNDROME [None]
  - UPPER RESPIRATORY TRACT INFECTION [None]
  - DRUG WITHDRAWAL SYNDROME [None]
  - NEPHROLITHIASIS [None]
  - INSOMNIA [None]
  - DRUG DOSE OMISSION [None]
  - AGGRESSION [None]
  - PANIC ATTACK [None]
  - WHITE BLOOD CELL COUNT INCREASED [None]
  - ANAEMIA [None]
